FAERS Safety Report 17276884 (Version 1)
Quarter: 2020Q1

REPORT INFORMATION
  Report Type: Spontaneous
  Country: US (occurrence: US)
  Receive Date: 20200115
  Receipt Date: 20200115
  Transmission Date: 20200409
  Serious: Yes (Hospitalization)
  Sender: FDA-Public Use
  Company Number: None

PATIENT
  Age: 71 Year
  Sex: Male

DRUGS (20)
  1. BISOPROL [Concomitant]
     Active Substance: BISOPROLOL FUMARATE
  2. CINACALCET. [Concomitant]
     Active Substance: CINACALCET
  3. LANTUS [Concomitant]
     Active Substance: INSULIN GLARGINE
  4. MIRALAX [Concomitant]
     Active Substance: POLYETHYLENE GLYCOL 3350
  5. PREDNISONE. [Concomitant]
     Active Substance: PREDNISONE
  6. RANITIDINE. [Concomitant]
     Active Substance: RANITIDINE
  7. ASPIRIN. [Concomitant]
     Active Substance: ASPIRIN
  8. HUMALOG [Concomitant]
     Active Substance: INSULIN LISPRO
  9. SIROLIMUS. [Suspect]
     Active Substance: SIROLIMUS
     Indication: RENAL TRANSPLANT
     Route: 048
     Dates: start: 20191206
  10. VITAMIN D3 [Concomitant]
     Active Substance: CHOLECALCIFEROL
  11. TACROLIMIS [Suspect]
     Active Substance: TACROLIMUS
     Indication: RENAL TRANSPLANT
     Route: 048
     Dates: start: 20191206
  12. MAGNESIUM [Concomitant]
     Active Substance: MAGNESIUM
  13. TAMSULOSIN [Concomitant]
     Active Substance: TAMSULOSIN
  14. VENLAFAXINE [Concomitant]
     Active Substance: VENLAFAXINE HYDROCHLORIDE
  15. WARFARIN [Concomitant]
     Active Substance: WARFARIN
  16. ATORVASTATIN [Concomitant]
     Active Substance: ATORVASTATIN
  17. LASIX [Concomitant]
     Active Substance: FUROSEMIDE
  18. POT CHLORIDE [Concomitant]
     Active Substance: POTASSIUM CHLORIDE
  19. XANAX [Concomitant]
     Active Substance: ALPRAZOLAM
  20. SENSIPAR [Concomitant]
     Active Substance: CINACALCET HYDROCHLORIDE

REACTIONS (1)
  - Gastrointestinal scarring [None]

NARRATIVE: CASE EVENT DATE: 20200108
